FAERS Safety Report 9776690 (Version 2)
Quarter: 2013Q4

REPORT INFORMATION
  Report Type: Spontaneous
  Country: FR (occurrence: FR)
  Receive Date: 20131220
  Receipt Date: 20131220
  Transmission Date: 20140711
  Serious: Yes (Life-Threatening)
  Sender: FDA-Public Use
  Company Number: FR-ABBVIE-12P-056-0975064-00

PATIENT
  Age: 50 Year
  Sex: Male

DRUGS (6)
  1. NORVIR [Suspect]
     Indication: HIV INFECTION
     Route: 048
     Dates: start: 20110124, end: 20120421
  2. TRUVADA [Interacting]
     Indication: HIV INFECTION
     Route: 048
     Dates: start: 20110124, end: 20120421
  3. NUROFEN [Interacting]
     Indication: BACK PAIN
     Route: 048
     Dates: start: 20120420, end: 20120420
  4. REYATAZ [Concomitant]
     Indication: HIV INFECTION
     Route: 048
     Dates: start: 20120124, end: 20120421
  5. ATARAX [Concomitant]
     Indication: PRODUCT USED FOR UNKNOWN INDICATION
     Route: 048
     Dates: start: 20110927, end: 20120421
  6. LEDERFOLINE [Concomitant]
     Indication: PRODUCT USED FOR UNKNOWN INDICATION
     Route: 048
     Dates: end: 20120421

REACTIONS (4)
  - Renal tubular disorder [Not Recovered/Not Resolved]
  - Renal failure acute [Not Recovered/Not Resolved]
  - Drug interaction [Not Recovered/Not Resolved]
  - Back pain [Unknown]
